FAERS Safety Report 10626217 (Version 1)
Quarter: 2014Q4

REPORT INFORMATION
  Report Type: Spontaneous
  Country: CZ (occurrence: CZ)
  Receive Date: 20141204
  Receipt Date: 20141204
  Transmission Date: 20150529
  Serious: Yes (Other)
  Sender: FDA-Public Use
  Company Number: CZ-ACTAVIS-2014-26039

PATIENT
  Age: 9 Year
  Sex: Male

DRUGS (6)
  1. ATOMOXETINE [Interacting]
     Active Substance: ATOMOXETINE
     Dosage: 40 MG, DAILY
     Route: 065
  2. RISPERIDONE (UNKNOWN) [Suspect]
     Active Substance: RISPERIDONE
     Indication: ATTENTION DEFICIT/HYPERACTIVITY DISORDER
     Dosage: 0.25 MG, QPM
     Route: 065
  3. ATOMOXETINE [Interacting]
     Active Substance: ATOMOXETINE
     Indication: ATTENTION DEFICIT/HYPERACTIVITY DISORDER
     Dosage: 10 MG, DAILY
     Route: 065
  4. ARIPIPRAZOLE (UNKNOWN) [Interacting]
     Active Substance: ARIPIPRAZOLE
     Indication: ATTENTION DEFICIT/HYPERACTIVITY DISORDER
     Dosage: 2.5 MG, QPM
     Route: 065
  5. ARIPIPRAZOLE (UNKNOWN) [Interacting]
     Active Substance: ARIPIPRAZOLE
     Dosage: 5 MG, QPM
     Route: 065
  6. ATOMOXETINE [Interacting]
     Active Substance: ATOMOXETINE
     Dosage: 25 MG, DAILY
     Route: 065

REACTIONS (4)
  - Sedation [Unknown]
  - Drug interaction [Unknown]
  - Priapism [Recovered/Resolved]
  - Weight increased [Unknown]
